FAERS Safety Report 6194712-X (Version None)
Quarter: 2009Q2

REPORT INFORMATION
  Report Type: 
  Country: None (occurrence: None)
  Receive Date: 20090519
  Receipt Date: 20090506
  Transmission Date: 20091009
  Serious: Yes (Hospitalization)
  Sender: FDA-Public Use
  Company Number: FR-PFIZER INC-2009204448

PATIENT
  Age: 76 Year

DRUGS (13)
  1. ALDACTONE [Suspect]
     Dosage: 25 MG, 1X/DAY
     Route: 048
     Dates: end: 20090309
  2. APROVEL [Suspect]
     Dosage: 37.5 MG, 1X/DAY
     Route: 048
     Dates: end: 20090309
  3. LASIX [Concomitant]
     Dosage: 40 MG, 2X/DAY
  4. AMIODARONE [Concomitant]
     Dosage: 200 MG, 1X/DAY
  5. CELIPROLOL [Concomitant]
     Dosage: 200 MG, 1X/DAY
  6. PREVISCAN [Concomitant]
     Dosage: 0.5 UNK, 1X/DAY
  7. DIAMICRON [Concomitant]
     Dosage: 30 MG, 4X/DAY
  8. LEVOTHYROX [Concomitant]
     Dosage: 150 UG, 1X/DAY
  9. PRAVASTATIN [Concomitant]
     Dosage: 40 MG, 1X/DAY
  10. ZOLPIDEM [Concomitant]
     Dosage: 1 UNK, 1X/DAY
  11. NOVOMIX [Concomitant]
     Dosage: 50 UNK, UNK
  12. SERETIDE DISKUS [Concomitant]
     Dosage: 250 UG, 2X/DAY
  13. PROPOFAN [Concomitant]
     Dosage: UNK

REACTIONS (4)
  - BLOOD CREATINE INCREASED [None]
  - BUNDLE BRANCH BLOCK RIGHT [None]
  - HYPERKALAEMIA [None]
  - VENTRICULAR EXTRASYSTOLES [None]
